FAERS Safety Report 8757829 (Version 1)
Quarter: 2012Q4

REPORT INFORMATION
  Report Type: 
  Country: BR (occurrence: BR)
  Receive Date: 20120828
  Receipt Date: 20120828
  Transmission Date: 20130627
  Serious: Yes (Hospitalization, Other)
  Sender: FDA-Public Use
  Company Number: BR-ROCHE-1106835

PATIENT
  Sex: Male
  Weight: 81 kg

DRUGS (4)
  1. PEGASYS [Suspect]
     Indication: HEPATITIS C
     Dates: start: 2005
  2. PEGASYS [Suspect]
     Dates: end: 20120618
  3. VICTRELIS [Concomitant]
     Indication: HEPATITIS C
     Dosage: 200/335 mg
     Route: 048
     Dates: start: 20120118, end: 20120618
  4. RIBAVIRIN [Concomitant]
     Indication: HEPATITIS C
     Dates: end: 20120618

REACTIONS (11)
  - Varices oesophageal [Recovered/Resolved]
  - Disease progression [Unknown]
  - Fluid retention [Unknown]
  - Swelling [Unknown]
  - Gastric disorder [Unknown]
  - Pyrexia [Unknown]
  - Hypoaesthesia [Unknown]
  - Malaise [Recovered/Resolved]
  - Alopecia [Unknown]
  - Sensitivity of teeth [Recovered/Resolved]
  - Breast pain [Unknown]
